FAERS Safety Report 23926335 (Version 1)
Quarter: 2024Q2

REPORT INFORMATION
  Report Type: Report from Study
  Country: CR (occurrence: CR)
  Receive Date: 20240531
  Receipt Date: 20240531
  Transmission Date: 20240716
  Serious: Yes (Other)
  Sender: FDA-Public Use
  Company Number: CR-MYLANLABS-2024M1049113

PATIENT
  Sex: Female

DRUGS (1)
  1. LIPITOR [Suspect]
     Active Substance: ATORVASTATIN CALCIUM
     Indication: Stent placement
     Dosage: UNK
     Route: 048

REACTIONS (3)
  - Myocardial infarction [Not Recovered/Not Resolved]
  - Cardiac operation [Not Recovered/Not Resolved]
  - Off label use [Not Recovered/Not Resolved]
